FAERS Safety Report 24255722 (Version 1)
Quarter: 2024Q3

REPORT INFORMATION
  Report Type: Report from Study
  Country: US (occurrence: US)
  Receive Date: 20240827
  Receipt Date: 20240827
  Transmission Date: 20241017
  Serious: Yes (Hospitalization, Other)
  Sender: HLS THERAPEUTICS
  Company Number: US-HLS-202400842

PATIENT
  Sex: Male

DRUGS (1)
  1. CLOZAPINE [Suspect]
     Active Substance: CLOZAPINE
     Indication: Product used for unknown indication
     Dosage: 50MG IN THE MORNING AND 200MG AT BEDTIME
     Route: 065

REACTIONS (3)
  - Behaviour disorder [Unknown]
  - Intentional self-injury [Unknown]
  - Treatment noncompliance [Not Recovered/Not Resolved]
